FAERS Safety Report 16881196 (Version 1)
Quarter: 2019Q4

REPORT INFORMATION
  Report Type: Report from Study
  Country: US (occurrence: US)
  Receive Date: 20191003
  Receipt Date: 20191003
  Transmission Date: 20200122
  Serious: Yes (Hospitalization)
  Sender: FDA-Public Use
  Company Number: US-BAYER-2019-174589

PATIENT
  Age: 20 Year
  Sex: Male

DRUGS (1)
  1. STIVARGA [Suspect]
     Active Substance: REGORAFENIB
     Indication: OSTEOSARCOMA
     Dosage: 160 MG DAILY
     Route: 048
     Dates: start: 20190919, end: 20190922

REACTIONS (6)
  - Hypertension [Not Recovered/Not Resolved]
  - Haemoptysis [Unknown]
  - Product use in unapproved indication [None]
  - Off label use [None]
  - Pneumothorax [Unknown]
  - Nausea [Not Recovered/Not Resolved]

NARRATIVE: CASE EVENT DATE: 201909
